FAERS Safety Report 6784982-9 (Version None)
Quarter: 2010Q2

REPORT INFORMATION
  Report Type: 
  Country: None (occurrence: None)
  Receive Date: 20100618
  Receipt Date: 20100613
  Transmission Date: 20101027
  Serious: Yes (Hospitalization)
  Sender: FDA-Public Use
  Company Number: 2010SP033026

PATIENT
  Age: 48 Year
  Sex: Female

DRUGS (1)
  1. CLARITIN [Suspect]
     Indication: ECZEMA
     Dosage: 10 MG; QD; PO
     Route: 048
     Dates: start: 20100518, end: 20100607

REACTIONS (2)
  - HEPATIC FUNCTION ABNORMAL [None]
  - JAUNDICE [None]
